FAERS Safety Report 8077998-6 (Version None)
Quarter: 2012Q1

REPORT INFORMATION
  Report Type: 
  Country: None (occurrence: None)
  Receive Date: 20120127
  Receipt Date: 20110107
  Transmission Date: 20120608
  Serious: No
  Sender: FDA-Public Use
  Company Number: US-ABBOTT-11P-163-0695881-00

PATIENT
  Sex: Female
  Weight: 68.1 kg

DRUGS (7)
  1. M.V.I. [Concomitant]
     Indication: PRODUCT USED FOR UNKNOWN INDICATION
  2. VITAMIN B-12 [Concomitant]
     Indication: PRODUCT USED FOR UNKNOWN INDICATION
  3. HUMIRA [Suspect]
     Indication: RHEUMATOID ARTHRITIS
     Dates: start: 20070101
  4. TIZANIDINE HCL [Suspect]
     Indication: MUSCLE SPASMS
     Dosage: LEG SPASM PRN
  5. LORTAB [Concomitant]
     Indication: PRODUCT USED FOR UNKNOWN INDICATION
  6. SIMVASTATIN [Concomitant]
     Indication: BLOOD CHOLESTEROL
  7. NEXIUM [Concomitant]
     Indication: GASTRIC DISORDER

REACTIONS (4)
  - PAIN [None]
  - DRUG INEFFECTIVE [None]
  - MUSCLE SPASMS [None]
  - SKIN LESION [None]
